FAERS Safety Report 16077594 (Version 1)
Quarter: 2019Q1

REPORT INFORMATION
  Report Type: Spontaneous
  Country: US (occurrence: US)
  Receive Date: 20190315
  Receipt Date: 20190315
  Transmission Date: 20190418
  Serious: No
  Sender: FDA-Public Use
  Company Number: US-PERRIGO-18US012751

PATIENT
  Age: 53 Year
  Sex: Female
  Weight: 79.37 kg

DRUGS (5)
  1. METOPROLOL. [Concomitant]
     Active Substance: METOPROLOL
     Indication: HYPERTENSION
     Dosage: UNK
     Route: 048
  2. IRBESARTAN. [Concomitant]
     Active Substance: IRBESARTAN
     Indication: HYPERTENSION
     Dosage: UNK
     Route: 048
  3. FLUOXETINE [Concomitant]
     Active Substance: FLUOXETINE HYDROCHLORIDE
     Indication: DEPRESSION
     Dosage: UNK
     Route: 048
  4. PODOFILOX. [Suspect]
     Active Substance: PODOFILOX
     Indication: SKIN PAPILLOMA
     Dosage: 1 APPLICATION, 2 TO 3 TIMES DAILY, FOR 3 DAYS
     Route: 061
     Dates: start: 201810, end: 201810
  5. PODOFILOX. [Suspect]
     Active Substance: PODOFILOX
     Dosage: 1 APPLICATION, 2 TO 3 TIMES DAILY, FOR 3 DAYS
     Route: 061
     Dates: start: 201811, end: 201811

REACTIONS (2)
  - Inappropriate schedule of product administration [Unknown]
  - Drug ineffective [Unknown]

NARRATIVE: CASE EVENT DATE: 201810
